FAERS Safety Report 20475704 (Version 1)
Quarter: 2022Q1

REPORT INFORMATION
  Report Type: Spontaneous
  Country: US (occurrence: US)
  Receive Date: 20220215
  Receipt Date: 20220215
  Transmission Date: 20220423
  Serious: No
  Sender: FDA-Public Use
  Company Number: US-PFIZER INC-2021562608

PATIENT

DRUGS (2)
  1. SOMAVERT [Suspect]
     Active Substance: PEGVISOMANT
     Dosage: UNK
  2. LANREOTIDE [Suspect]
     Active Substance: LANREOTIDE
     Dosage: UNK

REACTIONS (2)
  - Liver function test increased [Unknown]
  - Jaundice [Unknown]
